FAERS Safety Report 8513090-1 (Version None)
Quarter: 2012Q3

REPORT INFORMATION
  Report Type: 
  Country: None (occurrence: None)
  Receive Date: 20120716
  Receipt Date: 20120710
  Transmission Date: 20120928
  Serious: Yes (Hospitalization, Other)
  Sender: FDA-Public Use
  Company Number: US-PFIZER INC-2012166567

PATIENT
  Sex: Male

DRUGS (2)
  1. NORVASC [Suspect]
     Dosage: UNK
  2. LYRICA [Suspect]
     Dosage: UNK

REACTIONS (4)
  - TREMOR [None]
  - WITHDRAWAL SYNDROME [None]
  - MUSCLE SPASMS [None]
  - BLOOD PRESSURE INCREASED [None]
